FAERS Safety Report 17007864 (Version 1)
Quarter: 2019Q4

REPORT INFORMATION
  Report Type: Spontaneous
  Country: US (occurrence: US)
  Receive Date: 20191108
  Receipt Date: 20191108
  Transmission Date: 20200122
  Serious: No
  Sender: FDA-Public Use
  Company Number: US-ADVANZ PHARMA-201910001356

PATIENT

DRUGS (2)
  1. HYDROXYCHLOROQUINE [Suspect]
     Active Substance: HYDROXYCHLOROQUINE
     Dosage: UNK
  2. KEVZARA [Concomitant]
     Active Substance: SARILUMAB
     Indication: RHEUMATOID ARTHRITIS
     Dosage: 200 MG, EVERY 14 DAYS (200 MG/1.14) (2 PENS/BOX)
     Route: 058
     Dates: start: 20190226

REACTIONS (2)
  - Urticaria [Unknown]
  - Drug hypersensitivity [Unknown]
